FAERS Safety Report 5615436-0 (Version None)
Quarter: 2008Q1

REPORT INFORMATION
  Report Type: 
  Country: None (occurrence: None)
  Receive Date: 20080204
  Receipt Date: 20080204
  Transmission Date: 20080703
  Serious: Yes (Other)
  Sender: FDA-Public Use
  Company Number: None

PATIENT
  Age: 53 Year
  Sex: Female
  Weight: 48.0813 kg

DRUGS (2)
  1. HEPARIN SODIUM [Suspect]
     Indication: ANTICOAGULANT THERAPY
     Dosage: 10,000 USP UNITS 1 IV
     Route: 042
     Dates: start: 20080111, end: 20080111
  2. HEPARIN SODIUM [Suspect]
     Indication: PHOTOPHERESIS
     Dosage: 10,000 USP UNITS 1 IV
     Route: 042
     Dates: start: 20080111, end: 20080111

REACTIONS (4)
  - BRADYCARDIA [None]
  - CHEST DISCOMFORT [None]
  - CHEST PAIN [None]
  - HYPOTENSION [None]
